FAERS Safety Report 13576056 (Version 1)
Quarter: 2017Q2

REPORT INFORMATION
  Report Type: Spontaneous
  Country: US (occurrence: US)
  Receive Date: 20170523
  Receipt Date: 20170523
  Transmission Date: 20170830
  Serious: Yes (Death, Hospitalization)
  Sender: FDA-Public Use
  Company Number: None

PATIENT
  Age: 76 Year
  Sex: Male

DRUGS (1)
  1. REVLIMID [Suspect]
     Active Substance: LENALIDOMIDE
     Indication: PLASMA CELL MYELOMA
     Route: 048
     Dates: start: 20141008, end: 20150123

REACTIONS (8)
  - Rhabdomyolysis [None]
  - Encephalopathy [None]
  - Unresponsive to stimuli [None]
  - Fall [None]
  - Somnolence [None]
  - Pneumonia [None]
  - Septic shock [None]
  - Clostridium difficile infection [None]

NARRATIVE: CASE EVENT DATE: 20150208
